FAERS Safety Report 5580149-0 (Version None)
Quarter: 2007Q4

REPORT INFORMATION
  Report Type: 
  Country: None (occurrence: None)
  Receive Date: 20071228
  Receipt Date: 20071218
  Transmission Date: 20080405
  Serious: Yes (Other)
  Sender: FDA-Public Use
  Company Number: 2007S1013554

PATIENT
  Age: 19 Year
  Sex: Male

DRUGS (6)
  1. TRIAMTERENE AND HYDROCHLOROTHIAZIDE [Suspect]
     Indication: OVERDOSE
     Dosage: 50 MG; ORAL
     Route: 048
     Dates: start: 20071217, end: 20071217
  2. AMITRIPTYLINE HCL [Suspect]
     Indication: OVERDOSE
     Dosage: ORAL
     Route: 048
     Dates: start: 20071217, end: 20071217
  3. LAMOTRIGINE [Suspect]
     Indication: OVERDOSE
     Dosage: ORAL
     Route: 048
     Dates: start: 20071217, end: 20071217
  4. ACETAMINOPHEN [Suspect]
     Indication: OVERDOSE
     Dosage: ORAL
     Route: 048
     Dates: start: 20071217, end: 20071217
  5. VERMOX [Suspect]
     Indication: OVERDOSE
     Dosage: ORAL
     Route: 048
     Dates: start: 20071217, end: 20071217
  6. ALCOHOL /0002101/ (ETHANOL) [Suspect]
     Indication: OVERDOSE
     Dosage: ORAL
     Route: 048
     Dates: start: 20071217, end: 20071217

REACTIONS (3)
  - INTENTIONAL OVERDOSE [None]
  - SUICIDE ATTEMPT [None]
  - VOMITING [None]
